FAERS Safety Report 15278116 (Version 1)
Quarter: 2018Q3

REPORT INFORMATION
  Report Type: Spontaneous
  Country: IT (occurrence: IT)
  Receive Date: 20180814
  Receipt Date: 20180814
  Transmission Date: 20181010
  Serious: Yes (Death, Hospitalization, Other)
  Sender: FDA-Public Use
  Company Number: IT-SA-2018SA159431

PATIENT
  Age: 26 Year
  Sex: Male

DRUGS (3)
  1. RIFAMPICIN [Suspect]
     Active Substance: RIFAMPIN
     Indication: PULMONARY TUBERCULOSIS
  2. ISONIAZID. [Suspect]
     Active Substance: ISONIAZID
     Indication: PULMONARY TUBERCULOSIS
  3. PYRAZINAMIDE. [Suspect]
     Active Substance: PYRAZINAMIDE
     Indication: PULMONARY TUBERCULOSIS

REACTIONS (15)
  - Pyrexia [Fatal]
  - Acute kidney injury [Fatal]
  - Jaundice [Fatal]
  - Oliguria [Fatal]
  - Gastrointestinal haemorrhage [Fatal]
  - Inappropriate schedule of drug administration [Unknown]
  - Hypotension [Fatal]
  - Vomiting [Fatal]
  - Hepatomegaly [Fatal]
  - Tubulointerstitial nephritis [Fatal]
  - Purpura [Fatal]
  - Encephalopathy [Fatal]
  - Hepatic failure [Fatal]
  - Cough [Fatal]
  - Rash [Fatal]
